FAERS Safety Report 6120087-8 (Version None)
Quarter: 2009Q1

REPORT INFORMATION
  Report Type: 
  Country: None (occurrence: None)
  Receive Date: 20090311
  Receipt Date: 20090303
  Transmission Date: 20090719
  Serious: Yes (Life-Threatening, Hospitalization)
  Sender: FDA-Public Use
  Company Number: GXKR2009DE02691

PATIENT
  Age: 54 Year
  Sex: Male
  Weight: 78 kg

DRUGS (12)
  1. FALITHROM (NGX) (PHENPROCOUMON) FILM-COATED TABLET [Suspect]
     Indication: PULMONARY EMBOLISM
     Dosage: ORAL
     Route: 048
  2. FURORESE (NGX) (FUROSEMIDE) TABLET, 40MG [Suspect]
     Indication: RENAL IMPAIRMENT
     Dosage: 40 MG, QD, ORAL
     Route: 048
     Dates: end: 20080821
  3. HYDROCHLOROTHIAZDE TAB [Suspect]
     Indication: HYPERTENSION
     Dosage: 25 MG, QD, ORAL
     Route: 048
     Dates: end: 20080821
  4. BISOPROLOL FUMARATE [Suspect]
     Indication: CORONARY ARTERY DISEASE
     Dosage: 5 MG, BID, ORAL
     Route: 048
     Dates: end: 20080821
  5. RAMIPRIL [Suspect]
     Indication: HYPERTENSION
     Dosage: 5 MG, QD, ORAL
     Route: 048
     Dates: end: 20080821
  6. BEROTEC [Concomitant]
  7. NEURONTIN [Concomitant]
  8. PANTOZOL (PANTOPRAZOLE SODIUM) , 40 MG [Concomitant]
  9. PREGABALIN (PREGABALIN) , 50 MG [Concomitant]
  10. SIFROL (PRAMIPEXOLE DIHYDROCHLORIDE) , 0.18 MG [Concomitant]
  11. SIMVASTATIN [Concomitant]
  12. SPIRIVA [Concomitant]

REACTIONS (2)
  - DEHYDRATION [None]
  - INTERNATIONAL NORMALISED RATIO INCREASED [None]
